FAERS Safety Report 22834669 (Version 2)
Quarter: 2025Q1

REPORT INFORMATION
  Report Type: Spontaneous
  Country: PT (occurrence: PT)
  Receive Date: 20230817
  Receipt Date: 20250131
  Transmission Date: 20250409
  Serious: Yes (Other)
  Sender: CELLTRION
  Company Number: PT-CELLTRION INC.-2023PT016199

PATIENT

DRUGS (26)
  1. RITUXIMAB [Suspect]
     Active Substance: RITUXIMAB
     Indication: Encephalitis
     Route: 042
  2. RITUXIMAB [Suspect]
     Active Substance: RITUXIMAB
     Indication: Epilepsia partialis continua
  3. RITUXIMAB [Suspect]
     Active Substance: RITUXIMAB
     Indication: Extragonadal primary seminoma (pure)
  4. PREDNISONE [Suspect]
     Active Substance: PREDNISONE
     Indication: Epilepsia partialis continua
     Route: 048
  5. PREDNISONE [Suspect]
     Active Substance: PREDNISONE
     Indication: Encephalitis
  6. PREDNISONE [Suspect]
     Active Substance: PREDNISONE
     Indication: Extragonadal primary seminoma (pure)
  7. LACOSAMIDE [Suspect]
     Active Substance: LACOSAMIDE
     Indication: Encephalitis
  8. LACOSAMIDE [Suspect]
     Active Substance: LACOSAMIDE
     Indication: Extragonadal primary seminoma (pure)
  9. LACOSAMIDE [Suspect]
     Active Substance: LACOSAMIDE
     Indication: Epilepsia partialis continua
  10. HUMAN IMMUNOGLOBULIN G [Suspect]
     Active Substance: HUMAN IMMUNOGLOBULIN G
     Indication: Epilepsia partialis continua
     Route: 042
  11. HUMAN IMMUNOGLOBULIN G [Suspect]
     Active Substance: HUMAN IMMUNOGLOBULIN G
     Indication: Encephalitis
     Route: 042
  12. HUMAN IMMUNOGLOBULIN G [Suspect]
     Active Substance: HUMAN IMMUNOGLOBULIN G
     Indication: Extragonadal primary seminoma (pure)
  13. VALPROIC ACID [Suspect]
     Active Substance: VALPROIC ACID
     Indication: Extragonadal primary seminoma (pure)
  14. VALPROIC ACID [Suspect]
     Active Substance: VALPROIC ACID
     Indication: Epilepsia partialis continua
  15. VALPROIC ACID [Suspect]
     Active Substance: VALPROIC ACID
     Indication: Encephalitis
  16. PERAMPANEL [Suspect]
     Active Substance: PERAMPANEL
     Indication: Epilepsia partialis continua
  17. PERAMPANEL [Suspect]
     Active Substance: PERAMPANEL
     Indication: Encephalitis
  18. METHYLPREDNISOLONE SODIUM SUCCINATE [Suspect]
     Active Substance: METHYLPREDNISOLONE SODIUM SUCCINATE
     Indication: Epilepsia partialis continua
     Route: 042
  19. METHYLPREDNISOLONE SODIUM SUCCINATE [Suspect]
     Active Substance: METHYLPREDNISOLONE SODIUM SUCCINATE
     Indication: Extragonadal primary seminoma (pure)
  20. METHYLPREDNISOLONE SODIUM SUCCINATE [Suspect]
     Active Substance: METHYLPREDNISOLONE SODIUM SUCCINATE
     Indication: Encephalitis
  21. CLOBAZAM [Suspect]
     Active Substance: CLOBAZAM
     Indication: Epilepsia partialis continua
  22. CLOBAZAM [Suspect]
     Active Substance: CLOBAZAM
     Indication: Extragonadal primary seminoma (pure)
  23. CLOBAZAM [Suspect]
     Active Substance: CLOBAZAM
     Indication: Encephalitis
  24. AZATHIOPRINE [Suspect]
     Active Substance: AZATHIOPRINE
     Indication: Encephalitis
  25. AZATHIOPRINE [Suspect]
     Active Substance: AZATHIOPRINE
     Indication: Epilepsia partialis continua
  26. AZATHIOPRINE [Suspect]
     Active Substance: AZATHIOPRINE
     Indication: Extragonadal primary seminoma (pure)

REACTIONS (3)
  - Disease progression [Unknown]
  - Drug ineffective for unapproved indication [Unknown]
  - Off label use [Unknown]
